FAERS Safety Report 6383096-X (Version None)
Quarter: 2009Q3

REPORT INFORMATION
  Report Type: 
  Country: None (occurrence: None)
  Receive Date: 20090928
  Receipt Date: 20090914
  Transmission Date: 20100115
  Serious: Yes (Death)
  Sender: FDA-Public Use
  Company Number: OPER20090168

PATIENT
  Age: 32 Year
  Sex: Female

DRUGS (3)
  1. OPANA ER [Suspect]
     Indication: DRUG USE FOR UNKNOWN INDICATION
     Dosage: 10 MG BID
  2. ALPRAZOLAM [Suspect]
  3. HYDROCODONE (HYDROCODONE) [Suspect]

REACTIONS (4)
  - ACCIDENTAL DEATH [None]
  - DRUG TOXICITY [None]
  - UNRESPONSIVE TO STIMULI [None]
  - VOMITING [None]
